FAERS Safety Report 16037339 (Version 2)
Quarter: 2019Q1

REPORT INFORMATION
  Report Type: Spontaneous
  Country: PL (occurrence: PL)
  Receive Date: 20190305
  Receipt Date: 20190318
  Transmission Date: 20190418
  Serious: Yes (Other)
  Sender: FDA-Public Use
  Company Number: PL-PFIZER INC-2019091131

PATIENT
  Age: 75 Year
  Sex: Female

DRUGS (3)
  1. VINORELBINE [Suspect]
     Active Substance: VINORELBINE\VINORELBINE TARTRATE
     Dosage: 30 MG, 3 TIMES PER WEEK
     Route: 048
     Dates: start: 20170909
  2. VINORELBINE [Suspect]
     Active Substance: VINORELBINE\VINORELBINE TARTRATE
     Indication: NON-SMALL CELL LUNG CANCER STAGE IV
     Dosage: 50 MG, 3 TIMES PER WEEK
     Route: 048
     Dates: start: 20170605, end: 201708
  3. ZOLEDRONIC ACID [Suspect]
     Active Substance: ZOLEDRONIC ACID
     Dosage: 4 MG, UNK (EVERY 28 DAYS)
     Route: 065
     Dates: start: 201708

REACTIONS (7)
  - Nausea [Unknown]
  - Neutropenia [Unknown]
  - Decreased appetite [Unknown]
  - General physical condition decreased [Unknown]
  - Leukopenia [Unknown]
  - Dyspnoea exertional [Unknown]
  - Anaemia [Unknown]

NARRATIVE: CASE EVENT DATE: 201708
